FAERS Safety Report 19902956 (Version 1)
Quarter: 2021Q4

REPORT INFORMATION
  Report Type: Spontaneous
  Country: US (occurrence: US)
  Receive Date: 20211001
  Receipt Date: 20211001
  Transmission Date: 20220303
  Serious: No
  Sender: FDA-Public Use
  Company Number: US-ORGANON-O2109USA002329

PATIENT
  Sex: Female

DRUGS (1)
  1. NEXPLANON [Suspect]
     Active Substance: ETONOGESTREL
     Indication: Contraception
     Dosage: 1 ROD (68 MG)
     Dates: start: 20190809, end: 20190930

REACTIONS (2)
  - Implant site scar [Recovered/Resolved]
  - Implant site erythema [Recovered/Resolved]

NARRATIVE: CASE EVENT DATE: 20210101
